FAERS Safety Report 6518205-2 (Version None)
Quarter: 2009Q4

REPORT INFORMATION
  Report Type: 
  Country: None (occurrence: None)
  Receive Date: 20091224
  Receipt Date: 20091211
  Transmission Date: 20100525
  Serious: Yes (Other)
  Sender: FDA-Public Use
  Company Number: JP-PFIZER INC-2009307115

PATIENT
  Age: 33 Year
  Sex: Female

DRUGS (2)
  1. GABAPEN [Suspect]
     Indication: FIBROMYALGIA
     Dosage: 2400MG/DAY
     Route: 048
     Dates: start: 20060101
  2. DEPAKENE [Concomitant]
     Indication: CLONIC CONVULSION
     Route: 048

REACTIONS (1)
  - CLONIC CONVULSION [None]
